FAERS Safety Report 14204252 (Version 1)
Quarter: 2017Q4

REPORT INFORMATION
  Report Type: Spontaneous
  Country: US (occurrence: None)
  Receive Date: 20171118
  Receipt Date: 20171118
  Transmission Date: 20180321
  Serious: Yes (Hospitalization)
  Sender: FDA-Public Use
  Company Number: None

PATIENT
  Age: 55 Year
  Sex: Male
  Weight: 74.2 kg

DRUGS (4)
  1. LEUCOVORIN CALCIUM. [Suspect]
     Active Substance: LEUCOVORIN CALCIUM
     Dates: end: 20170725
  2. ENTECAVIR. [Concomitant]
     Active Substance: ENTECAVIR
  3. ELOXATIN [Suspect]
     Active Substance: OXALIPLATIN
     Dates: end: 20170725
  4. 5-FLUOROURACIL (5-FU) [Suspect]
     Active Substance: FLUOROURACIL
     Dates: end: 20170727

REACTIONS (18)
  - Constipation [None]
  - Sepsis [None]
  - Delirium [None]
  - Intra-abdominal fluid collection [None]
  - Blood bilirubin increased [None]
  - Post procedural complication [None]
  - Ascites [None]
  - Lethargy [None]
  - Haematoma [None]
  - Haemoglobin decreased [None]
  - Respiratory failure [None]
  - Electrocardiogram abnormal [None]
  - Hypotension [None]
  - Anastomotic leak [None]
  - Body temperature increased [None]
  - Small intestinal obstruction [None]
  - Acute kidney injury [None]
  - Hypoxia [None]

NARRATIVE: CASE EVENT DATE: 20171003
